FAERS Safety Report 5934401-7 (Version None)
Quarter: 2008Q4

REPORT INFORMATION
  Report Type: 
  Country: None (occurrence: None)
  Receive Date: 20081029
  Receipt Date: 20081028
  Transmission Date: 20090506
  Serious: Yes (Death, Hospitalization)
  Sender: FDA-Public Use
  Company Number: PHBS2008BR06041

PATIENT
  Age: 42 Year
  Sex: Female

DRUGS (2)
  1. CYCLOSPORINE [Suspect]
     Indication: RHEUMATOID ARTHRITIS
     Dosage: 100 MG/DAY
     Dates: start: 20040601, end: 20050501
  2. PREDNISONE TAB [Suspect]
     Dosage: 90 MG/DAY

REACTIONS (31)
  - ALANINE AMINOTRANSFERASE INCREASED [None]
  - ANAEMIA [None]
  - ARTHRITIS [None]
  - ASPARTATE AMINOTRANSFERASE INCREASED [None]
  - ASTHENIA [None]
  - BACTERIAL SEPSIS [None]
  - BLOOD LACTATE DEHYDROGENASE INCREASED [None]
  - CHILLS [None]
  - COUGH [None]
  - ECCHYMOSIS [None]
  - FELTY'S SYNDROME [None]
  - FURUNCLE [None]
  - LEUKOPENIA [None]
  - MARROW HYPERPLASIA [None]
  - MYALGIA [None]
  - NAUSEA [None]
  - NEUTROPENIA [None]
  - ORAL CANDIDIASIS [None]
  - ORAL DISORDER [None]
  - PANCYTOPENIA [None]
  - PETECHIAE [None]
  - PHARYNGITIS [None]
  - PRODUCTIVE COUGH [None]
  - PURULENT DISCHARGE [None]
  - PYREXIA [None]
  - RALES [None]
  - RESPIRATORY FAILURE [None]
  - SEPTIC SHOCK [None]
  - SPLENOMEGALY [None]
  - URINARY TRACT INFECTION [None]
  - VOMITING [None]
